FAERS Safety Report 10182138 (Version 2)
Quarter: 2014Q2

REPORT INFORMATION
  Report Type: Spontaneous
  Country: US (occurrence: US)
  Receive Date: 20140520
  Receipt Date: 20140520
  Transmission Date: 20141212
  Serious: Yes (Other)
  Sender: FDA-Public Use
  Company Number: US-ROCHE-1264746

PATIENT
  Sex: Female

DRUGS (6)
  1. XOLAIR [Suspect]
     Indication: ASTHMA
     Route: 058
     Dates: start: 200812
  2. XOLAIR [Suspect]
     Dosage: 1ST TRIMESTER
     Route: 058
  3. SINGULAIR [Concomitant]
     Route: 048
  4. RHINOCORT AQUA [Concomitant]
     Dosage: 2 SQUIRTS
     Route: 065
  5. PULMICORT [Concomitant]
     Route: 065
  6. ZYRTEC [Concomitant]
     Route: 048

REACTIONS (1)
  - Abortion spontaneous [Unknown]
